FAERS Safety Report 6724526-0 (Version None)
Quarter: 2010Q2

REPORT INFORMATION
  Report Type: 
  Country: None (occurrence: None)
  Receive Date: 20100513
  Receipt Date: 20100504
  Transmission Date: 20101027
  Serious: Yes (Other)
  Sender: FDA-Public Use
  Company Number: BR-PFIZER INC-2010056139

PATIENT
  Age: 57 Year
  Sex: Female
  Weight: 52 kg

DRUGS (4)
  1. CHAMPIX [Suspect]
     Indication: TOBACCO USER
     Dosage: 0.5 MG, 1X/DAY, EVERY 24 HOURS
     Route: 048
     Dates: start: 20100502
  2. PURAN T4 [Concomitant]
  3. CALCIUM [Concomitant]
     Indication: OSTEOPOROSIS
  4. OMEPRAZOLE [Concomitant]

REACTIONS (2)
  - DEPRESSION [None]
  - NERVOUSNESS [None]
